FAERS Safety Report 20840171 (Version 1)
Quarter: 2022Q2

REPORT INFORMATION
  Report Type: Report from Study
  Country: CA (occurrence: CA)
  Receive Date: 20220517
  Receipt Date: 20220517
  Transmission Date: 20220721
  Serious: Yes (Other)
  Sender: FDA-Public Use
  Company Number: CA-AMGEN-CANSL2022080098

PATIENT
  Age: 77 Year
  Sex: Female

DRUGS (4)
  1. PROLIA [Suspect]
     Active Substance: DENOSUMAB
     Indication: Product used for unknown indication
     Dosage: UNK
     Route: 065
     Dates: start: 201408
  2. RABEPRAZOLE [Concomitant]
     Active Substance: RABEPRAZOLE
  3. VITAMIN D [Concomitant]
     Active Substance: VITAMIN D NOS
     Dosage: 2000 UNK
  4. PRAVASTATIN [Concomitant]
     Active Substance: PRAVASTATIN
     Dosage: 20 MILLIGRAM, QD

REACTIONS (3)
  - Abscess jaw [Unknown]
  - Tooth loss [Unknown]
  - Bone loss [Unknown]

NARRATIVE: CASE EVENT DATE: 20200101
